FAERS Safety Report 6315836-X (Version None)
Quarter: 2009Q3

REPORT INFORMATION
  Report Type: 
  Country: None (occurrence: None)
  Receive Date: 20090820
  Receipt Date: 20070409
  Transmission Date: 20100115
  Serious: Yes (Other)
  Sender: FDA-Public Use
  Company Number: US-ASTRAZENECA-2006UW24141

PATIENT
  Age: 15223 Day
  Sex: Female
  Weight: 88.9 kg

DRUGS (9)
  1. SEROQUEL [Suspect]
     Dosage: 25 MG
     Route: 048
     Dates: start: 19981214
  2. AMBIEN [Concomitant]
     Dosage: 10 MG
     Dates: start: 20020702
  3. VERAPAMIL ER [Concomitant]
     Dosage: 120 MG
     Dates: start: 20020702
  4. PROZAC [Concomitant]
     Dosage: 20 MG
     Dates: start: 19960729
  5. COMBIVENT [Concomitant]
     Dates: start: 20020702
  6. XANAX [Concomitant]
     Dates: start: 19951128
  7. VICODIN [Concomitant]
     Dosage: 5/500 MG
     Dates: start: 20020702
  8. LASIX [Concomitant]
     Dosage: 20 MG
     Dates: start: 20020702
  9. CYCLOBENZAPRINE [Concomitant]
     Dosage: 10 MG
     Dates: start: 20020702

REACTIONS (2)
  - DIABETES MELLITUS [None]
  - DIABETIC NEUROPATHY [None]
